FAERS Safety Report 9069329 (Version 1)
Quarter: 2013Q1

REPORT INFORMATION
  Report Type: Spontaneous
  Country: DE (occurrence: DE)
  Receive Date: 20130215
  Receipt Date: 20130215
  Transmission Date: 20140127
  Serious: Yes (Other)
  Sender: FDA-Public Use
  Company Number: DE-ROCHE-1191153

PATIENT
  Sex: Female

DRUGS (2)
  1. XOLAIR [Suspect]
     Indication: ASTHMA
     Route: 065
     Dates: start: 2012
  2. LEFLUNOMIDE [Suspect]
     Indication: RHEUMATIC DISORDER
     Route: 065

REACTIONS (1)
  - Asthma [Not Recovered/Not Resolved]
